FAERS Safety Report 4530783-1 (Version None)
Quarter: 2004Q4

REPORT INFORMATION
  Report Type: 
  Country: None (occurrence: None)
  Receive Date: 20041129
  Receipt Date: 20041020
  Transmission Date: 20050328
  Serious: Yes (Hospitalization)
  Sender: FDA-Public Use
  Company Number: US_010668260

PATIENT
  Age: 37 Year
  Sex: Male
  Weight: 144 kg

DRUGS (15)
  1. ZYPREXA [Suspect]
     Indication: SCHIZOAFFECTIVE DISORDER
     Dosage: 20 MG/1 DAY
     Dates: start: 19970101, end: 20040101
  2. ABILIFY [Concomitant]
  3. SEROQUEL [Concomitant]
  4. RISPERDAL [Concomitant]
  5. GEODON [Concomitant]
  6. THORAZINE [Concomitant]
  7. HALDOL [Concomitant]
  8. NAVANE [Concomitant]
  9. WELLBUTRIN [Concomitant]
  10. REMERON (MIRTAZAPINE ORIFARM) [Concomitant]
  11. ZOLOFT [Concomitant]
  12. EFFEXOR [Concomitant]
  13. GLUCOTROL [Concomitant]
  14. METAGLIP [Concomitant]
  15. GLUCOPHAGE [Concomitant]

REACTIONS (4)
  - DIABETES MELLITUS [None]
  - DIARRHOEA [None]
  - SCHIZOPHRENIA [None]
  - WEIGHT INCREASED [None]
